FAERS Safety Report 10249380 (Version 1)
Quarter: 2014Q2

REPORT INFORMATION
  Report Type: Spontaneous
  Country: US (occurrence: None)
  Receive Date: 20140618
  Receipt Date: 20140618
  Transmission Date: 20141212
  Serious: Yes (Other)
  Sender: FDA-Public Use
  Company Number: None

PATIENT
  Age: 67 Year
  Sex: Female
  Weight: 72.58 kg

DRUGS (1)
  1. NEXIUM [Suspect]
     Indication: GASTRITIS
     Dosage: 20 MG 1PILL ONCE DAILY TAKEN BY MOUTH
     Route: 048
     Dates: start: 20140509, end: 20140509

REACTIONS (1)
  - Paraesthesia [None]
